FAERS Safety Report 6299869-8 (Version None)
Quarter: 2009Q3

REPORT INFORMATION
  Report Type: 
  Country: None (occurrence: None)
  Receive Date: 20090806
  Receipt Date: 20090729
  Transmission Date: 20100115
  Serious: Yes (Hospitalization)
  Sender: FDA-Public Use
  Company Number: US-AVENTIS-200917917GDDC

PATIENT
  Age: 75 Year
  Sex: Male
  Weight: 77.3 kg

DRUGS (12)
  1. DOCETAXEL [Suspect]
     Indication: LUNG CANCER METASTATIC
     Dosage: DOSE: UNK
     Route: 042
     Dates: start: 20090619
  2. CARBOPLATIN [Suspect]
     Indication: LUNG CANCER METASTATIC
     Dosage: DOSE: UNK
     Dates: start: 20090619
  3. CODE UNBROKEN [Suspect]
     Indication: PROPHYLAXIS
     Route: 048
     Dates: start: 20090514
  4. CODE UNBROKEN [Suspect]
     Route: 048
  5. CODE UNBROKEN [Suspect]
     Dosage: DOSE: 10 MG IN AM AND 5 MG IN PM
     Route: 048
  6. CODE UNBROKEN [Suspect]
     Route: 048
     Dates: end: 20090629
  7. CODE UNBROKEN [Suspect]
     Route: 048
     Dates: start: 20090701
  8. RADIATION [Suspect]
     Dosage: DOSE: EXTERNAL BEAM 37.5 GY (5 DAYS A WEEK FOR 3 WEEKS)
     Dates: start: 20090514, end: 20090604
  9. ATENOLOL [Concomitant]
  10. DEXAMETHASONE [Concomitant]
  11. LEXAPRO [Concomitant]
  12. LISINOPRIL [Concomitant]

REACTIONS (4)
  - BLOOD CREATININE INCREASED [None]
  - BLOOD UREA NITROGEN/CREATININE RATIO INCREASED [None]
  - DEHYDRATION [None]
  - HYPONATRAEMIA [None]
